FAERS Safety Report 12432547 (Version 1)
Quarter: 2016Q2

REPORT INFORMATION
  Report Type: Spontaneous
  Country: US (occurrence: None)
  Receive Date: 20160602
  Receipt Date: 20160602
  Transmission Date: 20160815
  Serious: Yes (Other)
  Sender: FDA-Public Use
  Company Number: None

PATIENT
  Age: 79 Year
  Sex: Female
  Weight: 86.18 kg

DRUGS (8)
  1. CLOBETASOL PROPIONATE. [Suspect]
     Active Substance: CLOBETASOL PROPIONATE
     Indication: ECZEMA
     Route: 061
     Dates: start: 20160408, end: 20160414
  2. PRAVASTATIN [Concomitant]
     Active Substance: PRAVASTATIN\PRAVASTATIN SODIUM
  3. ASPERIN [Concomitant]
  4. METOPROL TARTAR [Concomitant]
  5. CALCIUM+D [Concomitant]
  6. HYDROCHLOROTHIAZIDE. [Concomitant]
     Active Substance: HYDROCHLOROTHIAZIDE
  7. AMLODIPINE BESALATE [Concomitant]
  8. CLOBETASOL PROPIONATE. [Suspect]
     Active Substance: CLOBETASOL PROPIONATE
     Indication: OEDEMA
     Route: 061
     Dates: start: 20160408, end: 20160414

REACTIONS (4)
  - Pruritus [None]
  - Product formulation issue [None]
  - Rash erythematous [None]
  - Erythema [None]

NARRATIVE: CASE EVENT DATE: 20160414
